FAERS Safety Report 25825940 (Version 2)
Quarter: 2025Q4

REPORT INFORMATION
  Report Type: Spontaneous
  Country: US (occurrence: US)
  Receive Date: 20250919
  Receipt Date: 20251112
  Transmission Date: 20260118
  Serious: No
  Sender: MALLINCKRODT
  Company Number: US-MALLINCKRODT-MNK202505814

PATIENT
  Age: 66 Year
  Sex: Female

DRUGS (3)
  1. CORTICOTROPIN [Suspect]
     Active Substance: CORTICOTROPIN
     Indication: Fibromyalgia
     Dosage: 80 UNITS
     Route: 058
     Dates: start: 202508
  2. COVID-19 VACCINE [Concomitant]
     Dosage: UNKNOWN
  3. INFLUENZA VIRUS VACCINE [Concomitant]
     Active Substance: INFLUENZA VIRUS VACCINE
     Dosage: UNKNOWN

REACTIONS (1)
  - Tinea infection [Unknown]
